FAERS Safety Report 9551590 (Version 1)
Quarter: 2013Q3

REPORT INFORMATION
  Report Type: Spontaneous
  Country: US (occurrence: None)
  Receive Date: 20130724
  Receipt Date: 20130724
  Transmission Date: 20140515
  Serious: Yes (Other)
  Sender: FDA-Public Use
  Company Number: PHEH2012US012263

PATIENT
  Age: 74 Year
  Sex: Female
  Weight: 106.5 kg

DRUGS (2)
  1. GLEEVEC [Suspect]
     Indication: CHRONIC MYELOID LEUKAEMIA
     Route: 048
  2. DRY EYES - EYE DROPS (POLYVINYL ALCOHOL) [Concomitant]

REACTIONS (1)
  - Glaucoma [None]
